FAERS Safety Report 26213315 (Version 1)
Quarter: 2025Q4

REPORT INFORMATION
  Report Type: Spontaneous
  Country: EU (occurrence: EU)
  Receive Date: 20251230
  Receipt Date: 20251230
  Transmission Date: 20260119
  Serious: Yes (Other)
  Sender: NOVARTIS
  Company Number: None

PATIENT
  Age: 63 Year
  Sex: Male
  Weight: 82 kg

DRUGS (1)
  1. SIPONIMOD [Suspect]
     Active Substance: SIPONIMOD
     Indication: Multiple sclerosis
     Dosage: 2 MG, QD (2 MG 1-0-0)
     Route: 048
     Dates: start: 20200101, end: 20251221

REACTIONS (8)
  - Urethral abscess [Not Recovered/Not Resolved]
  - Urethral fistula [Not Recovered/Not Resolved]
  - Impaired healing [Not Recovered/Not Resolved]
  - Urinary hesitation [Unknown]
  - Peyronie^s disease [Unknown]
  - Bladder diverticulum [Unknown]
  - Dysuria [Unknown]
  - Balanoposthitis [Unknown]

NARRATIVE: CASE EVENT DATE: 20250101
